FAERS Safety Report 11781222 (Version 4)
Quarter: 2016Q3

REPORT INFORMATION
  Report Type: Spontaneous
  Country: US (occurrence: US)
  Receive Date: 20151126
  Receipt Date: 20160923
  Transmission Date: 20161109
  Serious: Yes (Hospitalization, Other)
  Sender: FDA-Public Use
  Company Number: US-PFIZER INC-2015393866

PATIENT
  Age: 55 Year
  Sex: Female

DRUGS (28)
  1. ALIGN [Suspect]
     Active Substance: BIFIDOBACTERIUM LONGUM SUBSP. INFANTIS
     Indication: DYSPEPSIA
     Dosage: 4 MG, DAILY (1 CAPSULE)
     Dates: start: 201505
  2. PRAVACHOL [Concomitant]
     Active Substance: PRAVASTATIN SODIUM
     Dosage: 20 MG, 1X/DAY (AT BEDTIME)
     Route: 048
  3. ZOFRAN [Concomitant]
     Active Substance: ONDANSETRON HYDROCHLORIDE
     Indication: VOMITING
  4. FERROUS SULFATE. [Concomitant]
     Active Substance: FERROUS SULFATE
     Dosage: 325 MG, DAILY (65 MG ELEMENTAL IRON, 325 MG PER 1 TABLET)
     Route: 048
  5. VITAMIN D [Suspect]
     Active Substance: CHOLECALCIFEROL
     Dosage: 50000 IU, WEEKLY (50,000 IU (1.25 MG) ORAL CAPSULE)
     Route: 048
     Dates: start: 201501
  6. TOPROL XL [Concomitant]
     Active Substance: METOPROLOL SUCCINATE
     Dosage: UNK
  7. OMEPRAZOLE. [Concomitant]
     Active Substance: OMEPRAZOLE
     Dosage: 40 MG, 1X/DAY
     Dates: start: 201504
  8. ZYRTEC [Concomitant]
     Active Substance: CETIRIZINE HYDROCHLORIDE
     Indication: HYPERSENSITIVITY
     Dosage: 10 MG, AS NEEDED (DAILY)
     Route: 048
  9. INLYTA [Suspect]
     Active Substance: AXITINIB
     Indication: METASTATIC RENAL CELL CARCINOMA
     Dosage: 5 MG, 2X/DAY
     Route: 048
  10. MEGAZYME [Suspect]
     Active Substance: .ALPHA.-AMYLASE (ASPERGILLUS ORYZAE)\BROMELAINS\CHYMOTRYPSIN\LYSOZYME\PANCRELIPASE\PANCRELIPASE LIPASE\PAPAIN\TRYPSIN
     Dosage: 2 DF, 3X/DAY (WITH MEALS)
     Route: 048
  11. OMEPRAZOLE. [Concomitant]
     Active Substance: OMEPRAZOLE
     Indication: ULCER
     Dosage: 40 MG, 1X/DAY
     Dates: start: 201504, end: 2015
  12. OMEPRAZOLE. [Concomitant]
     Active Substance: OMEPRAZOLE
     Dosage: 20 MG, 1X/DAY
     Dates: start: 2015, end: 2015
  13. NOVOLOG [Concomitant]
     Active Substance: INSULIN ASPART
     Dosage: UNK, 3X/DAY (100 UNITS/ML)(TIDAC/3 TIMES A DAY BEFORE MEALS)
     Route: 058
  14. MEGAZYME [Suspect]
     Active Substance: .ALPHA.-AMYLASE (ASPERGILLUS ORYZAE)\BROMELAINS\CHYMOTRYPSIN\LYSOZYME\PANCRELIPASE\PANCRELIPASE LIPASE\PAPAIN\TRYPSIN
     Dosage: 1 DF, AS NEEDED  (BID, (2 TIMES A DAY) TAKE WITH SNACKS)
  15. LISINOPRIL. [Concomitant]
     Active Substance: LISINOPRIL
     Indication: HYPERTENSION
     Dosage: 5 MG, 1X/DAY (1/2 TABLET)
     Dates: start: 201210
  16. ALPRAZOLAM. [Concomitant]
     Active Substance: ALPRAZOLAM
     Indication: ANXIETY
  17. CLOBETASOL [Concomitant]
     Active Substance: CLOBETASOL
     Dosage: UNK, AS NEEDED (0.05% TOPICAL SOLUTION, BID, 1 APPLICATION, PRN FLAKES)
     Route: 061
  18. ZOFRAN [Concomitant]
     Active Substance: ONDANSETRON HYDROCHLORIDE
     Indication: NAUSEA
     Dosage: 8 MG, AS NEEDED (Q8H, PRN)
     Route: 048
  19. TIZANIDINE. [Concomitant]
     Active Substance: TIZANIDINE
     Dosage: 4 MG, 3X/DAY (Q8H)
     Route: 048
  20. MEGAZYME [Suspect]
     Active Substance: .ALPHA.-AMYLASE (ASPERGILLUS ORYZAE)\BROMELAINS\CHYMOTRYPSIN\LYSOZYME\PANCRELIPASE\PANCRELIPASE LIPASE\PAPAIN\TRYPSIN
     Indication: PANCREATIC ENZYMES
     Dosage: 2 DF, UNK
     Dates: start: 201012
  21. ALPRAZOLAM. [Concomitant]
     Active Substance: ALPRAZOLAM
     Indication: SLEEP DISORDER
     Dosage: 0.25 MG, 1X/DAY (EACH NIGHT AT BEDTIME)
     Route: 048
  22. PATADAY [Concomitant]
     Active Substance: OLOPATADINE HYDROCHLORIDE
     Dosage: 1 GTT, DAILY  (0.2%, 1 DROP, EYE, EACH)
     Route: 047
  23. IMODIUM A-D [Concomitant]
     Active Substance: LOPERAMIDE HYDROCHLORIDE
     Indication: DIARRHOEA
     Dosage: 2 MG, AS NEEDED (2 MG PER 1 TABLET, ORAL, Q4H)
     Route: 048
  24. LEVOTHYROXINE SODIUM. [Concomitant]
     Active Substance: LEVOTHYROXINE SODIUM
     Dosage: 62.5 MCG, DAILY (62.5 MCG PER 0.5 TABLET)
     Route: 048
  25. TYLENOL [Concomitant]
     Active Substance: ACETAMINOPHEN
     Indication: PYREXIA
  26. METOPROLOL XL [Concomitant]
     Active Substance: METOPROLOL SUCCINATE
     Dosage: 25 MG, 1X/DAY (1/2 TABLET)
     Route: 048
     Dates: start: 201210
  27. PRAVASTATIN. [Concomitant]
     Active Substance: PRAVASTATIN
     Indication: BLOOD CHOLESTEROL INCREASED
     Dosage: 20 MG, 1X/DAY (TAKE 1 TABLET EVERY NIGHT)
     Route: 048
     Dates: start: 201210
  28. TYLENOL [Concomitant]
     Active Substance: ACETAMINOPHEN
     Indication: PAIN
     Dosage: 650 MG, AS NEEDED (PER 2 TABLET, Q4H PRN)
     Route: 048

REACTIONS (4)
  - Anaemia [Recovered/Resolved]
  - Gastrointestinal haemorrhage [Recovered/Resolved]
  - Gastric ulcer [Recovered/Resolved]
  - Hypotension [Recovered/Resolved]

NARRATIVE: CASE EVENT DATE: 20150403
